FAERS Safety Report 16370740 (Version 1)
Quarter: 2019Q2

REPORT INFORMATION
  Report Type: Spontaneous
  Country: FR (occurrence: FR)
  Receive Date: 20190530
  Receipt Date: 20190530
  Transmission Date: 20190711
  Serious: Yes (Life-Threatening)
  Sender: FDA-Public Use
  Company Number: FR-ACCORD-130173

PATIENT
  Age: 65 Year
  Sex: Female

DRUGS (7)
  1. IMOVANE [Suspect]
     Active Substance: ZOPICLONE
     Indication: INSOMNIA
     Dosage: STRENGTH: 7.5 MG
     Route: 048
     Dates: start: 20190212, end: 20190402
  2. BACTRIM [Suspect]
     Active Substance: SULFAMETHOXAZOLE\TRIMETHOPRIM
     Indication: PROPHYLAXIS
     Dosage: 1 CAPSULE ON MONDAYS, WEDNESDAYS AND FRIDAYS
     Route: 048
     Dates: start: 20190212
  3. CARBOPLATIN ACCORD [Suspect]
     Active Substance: CARBOPLATIN
     Indication: BRAIN CANCER METASTATIC
     Route: 042
     Dates: start: 20190322, end: 20190322
  4. ESOMEPRAZOLE/ESOMEPRAZOLE MAGNESIUM/ESOMEPRAZOLE SODIUM [Suspect]
     Active Substance: ESOMEPRAZOLE
     Indication: GASTRIC ULCER
     Route: 048
     Dates: start: 20190212
  5. CORTANCYL [Suspect]
     Active Substance: PREDNISONE
     Indication: BRAIN CANCER METASTATIC
     Route: 048
     Dates: start: 20190212, end: 20190328
  6. KEPPRA [Suspect]
     Active Substance: LEVETIRACETAM
     Indication: EPILEPSY
     Dosage: STRENGTH: 500 MG
     Route: 048
     Dates: start: 20190322
  7. ALIMTA [Suspect]
     Active Substance: PEMETREXED DISODIUM
     Indication: BRAIN CANCER METASTATIC
     Route: 042
     Dates: start: 20190322, end: 20190322

REACTIONS (2)
  - Meningitis herpes [Recovering/Resolving]
  - Off label use [Unknown]

NARRATIVE: CASE EVENT DATE: 20190328
